FAERS Safety Report 5605505-3 (Version None)
Quarter: 2008Q1

REPORT INFORMATION
  Report Type: 
  Country: None (occurrence: None)
  Receive Date: 20080129
  Receipt Date: 20080121
  Transmission Date: 20080703
  Serious: Yes (Death, Other)
  Sender: FDA-Public Use
  Company Number: US-BRISTOL-MYERS SQUIBB COMPANY-13379011

PATIENT
  Age: 67 Year
  Sex: Male

DRUGS (3)
  1. ERBITUX [Suspect]
     Indication: SQUAMOUS CELL CARCINOMA OF SKIN
     Route: 042
  2. RADIOTHERAPY [Suspect]
  3. METHYLPREDNISOLONE [Concomitant]
     Indication: LUNG TRANSPLANT REJECTION
     Route: 042

REACTIONS (2)
  - DIFFUSE ALVEOLAR DAMAGE [None]
  - RESPIRATORY FAILURE [None]
